FAERS Safety Report 17133567 (Version 4)
Quarter: 2024Q1

REPORT INFORMATION
  Report Type: Report from Study
  Country: US (occurrence: US)
  Receive Date: 20191210
  Receipt Date: 20240305
  Transmission Date: 20240409
  Serious: Yes (Hospitalization)
  Sender: FDA-Public Use
  Company Number: US-SHIRE-US201942657

PATIENT
  Age: 21 Year
  Sex: Female
  Weight: 52 kg

DRUGS (15)
  1. LANADELUMAB [Suspect]
     Active Substance: LANADELUMAB
     Indication: Immune system disorder
     Dosage: 300 MILLIGRAM, Q2WEEKS
     Route: 058
     Dates: start: 20190211
  2. LANADELUMAB [Suspect]
     Active Substance: LANADELUMAB
     Dosage: 450 MILLIGRAM
     Route: 058
     Dates: start: 202002
  3. LANADELUMAB [Suspect]
     Active Substance: LANADELUMAB
     Dosage: 300 MILLIGRAM
     Route: 058
     Dates: start: 20200228
  4. LANADELUMAB [Suspect]
     Active Substance: LANADELUMAB
     Dosage: 300 MILLIGRAM
     Route: 058
  5. FIRAZYR [Suspect]
     Active Substance: ICATIBANT ACETATE
     Indication: Hereditary angioedema
     Dosage: 30 MILLILITER
     Route: 058
     Dates: start: 20181219
  6. FIRAZYR [Suspect]
     Active Substance: ICATIBANT ACETATE
     Indication: Hereditary angioedema
     Dosage: 30 MILLILITER
     Route: 058
     Dates: start: 20181219
  7. FIRAZYR [Suspect]
     Active Substance: ICATIBANT ACETATE
     Dosage: UNK
     Route: 065
  8. FIRAZYR [Suspect]
     Active Substance: ICATIBANT ACETATE
     Dosage: UNK
     Route: 065
  9. TRAMADOL [Concomitant]
     Active Substance: TRAMADOL\TRAMADOL HYDROCHLORIDE
  10. NAPROSYN [Concomitant]
     Active Substance: NAPROXEN
  11. ZYRTEC [Concomitant]
     Active Substance: CETIRIZINE HYDROCHLORIDE
  12. VITAMIN E [Concomitant]
     Active Substance: .ALPHA.-TOCOPHEROL
  13. NORCO [Concomitant]
     Active Substance: ACETAMINOPHEN\HYDROCODONE BITARTRATE
  14. BIOTIN [Concomitant]
     Active Substance: BIOTIN
  15. CRANBERRY [Concomitant]
     Active Substance: CRANBERRY

REACTIONS (6)
  - Hereditary angioedema [Not Recovered/Not Resolved]
  - Sinusitis [Unknown]
  - Therapeutic product effect decreased [Unknown]
  - Inappropriate schedule of product administration [Unknown]
  - Extra dose administered [Unknown]
  - Off label use [Unknown]

NARRATIVE: CASE EVENT DATE: 20200205
